FAERS Safety Report 5812141-2 (Version None)
Quarter: 2008Q3

REPORT INFORMATION
  Report Type: 
  Country: None (occurrence: None)
  Receive Date: 20080716
  Receipt Date: 20080709
  Transmission Date: 20090109
  Serious: Yes (Death, Hospitalization)
  Sender: FDA-Public Use
  Company Number: FR-ABBOTT-08P-056-0462032-00

PATIENT
  Sex: Female

DRUGS (11)
  1. DEPAKENE [Suspect]
     Indication: PARTIAL SEIZURES
     Route: 048
     Dates: start: 20080329
  2. DEPAKENE [Suspect]
     Route: 048
     Dates: end: 20080515
  3. DEPAKENE [Suspect]
     Route: 048
     Dates: start: 20080516, end: 20080521
  4. FLUINDIONE [Concomitant]
     Indication: DRUG USE FOR UNKNOWN INDICATION
     Route: 048
  5. RAMIPRIL [Concomitant]
     Indication: DRUG USE FOR UNKNOWN INDICATION
     Route: 048
  6. BISOPROLOL FUMARATE [Concomitant]
     Indication: DRUG USE FOR UNKNOWN INDICATION
     Route: 048
  7. ATORVASTATIN CALCIUM [Concomitant]
     Indication: DRUG USE FOR UNKNOWN INDICATION
     Route: 048
  8. FUROSEMIDE [Concomitant]
     Indication: DRUG USE FOR UNKNOWN INDICATION
     Route: 048
  9. LEVOTHYROXINE SODIUM [Concomitant]
     Indication: DRUG USE FOR UNKNOWN INDICATION
     Route: 048
  10. OMEPRAZOLE SODIUM [Concomitant]
     Indication: DRUG USE FOR UNKNOWN INDICATION
     Route: 048
  11. OXYBUTYNIN [Concomitant]
     Indication: DRUG USE FOR UNKNOWN INDICATION
     Route: 048

REACTIONS (10)
  - BRADYPHRENIA [None]
  - CYTOLYTIC HEPATITIS [None]
  - DRUG WITHDRAWAL CONVULSIONS [None]
  - EPILEPSY [None]
  - FEELING DRUNK [None]
  - HAEMOPHILUS INFECTION [None]
  - HEPATOCELLULAR INJURY [None]
  - JAUNDICE [None]
  - PYREXIA [None]
  - SEPTIC SHOCK [None]
